FAERS Safety Report 4376107-4 (Version None)
Quarter: 2004Q2

REPORT INFORMATION
  Report Type: 
  Country: None (occurrence: None)
  Receive Date: 20040611
  Receipt Date: 20040419
  Transmission Date: 20050107
  Serious: Yes (Life-Threatening, Hospitalization)
  Sender: FDA-Public Use
  Company Number: 2004006851

PATIENT
  Age: 39 Year
  Sex: Female
  Weight: 65 kg

DRUGS (4)
  1. LAMICTAL [Suspect]
     Indication: EPILEPSY
     Dosage: 3TAB THREE TIMES PER DAY
     Route: 048
  2. TRILEPTAL [Suspect]
     Dosage: 3TAB THREE TIMES PER DAY
     Route: 048
  3. CIPRALEX [Suspect]
     Dosage: 1.5TAB PER DAY
     Route: 048
  4. FOLIC ACID [Suspect]
     Dosage: 1TAB PER DAY
     Route: 048

REACTIONS (10)
  - ALANINE AMINOTRANSFERASE ABNORMAL [None]
  - ASPARTATE AMINOTRANSFERASE ABNORMAL [None]
  - BLOOD CREATINE PHOSPHOKINASE INCREASED [None]
  - BLOOD LACTIC ACID INCREASED [None]
  - COMA [None]
  - HEPATIC FUNCTION ABNORMAL [None]
  - PNEUMONIA [None]
  - PROTHROMBIN TIME PROLONGED [None]
  - PYREXIA [None]
  - SEPSIS [None]
